FAERS Safety Report 8101673-2 (Version None)
Quarter: 2012Q1

REPORT INFORMATION
  Report Type: 
  Country: None (occurrence: None)
  Receive Date: 20120129
  Receipt Date: 20111012
  Transmission Date: 20120608
  Serious: No
  Sender: FDA-Public Use
  Company Number: US-ABBOTT-11P-163-0863452-00

PATIENT
  Age: 37 Year
  Sex: Female

DRUGS (6)
  1. IMURAN [Concomitant]
     Indication: PRODUCT USED FOR UNKNOWN INDICATION
     Dosage: 3 TABLETS
  2. PREDNISONE TAB [Concomitant]
     Indication: PRODUCT USED FOR UNKNOWN INDICATION
     Dosage: TAPERED OFF
  3. PENTASA [Concomitant]
     Indication: PRODUCT USED FOR UNKNOWN INDICATION
  4. HUMIRA [Suspect]
     Indication: CROHN'S DISEASE
     Dosage: DAY 1
     Dates: start: 20110816, end: 20110816
  5. LORTAB [Concomitant]
     Indication: CROHN'S DISEASE
     Dosage: 7.5/500 MG AS NEEDED
  6. LORTAB [Concomitant]
     Indication: PAIN

REACTIONS (5)
  - HYPERVENTILATION [None]
  - HYPOAESTHESIA [None]
  - FEELING ABNORMAL [None]
  - SYSTEMIC LUPUS ERYTHEMATOSUS [None]
  - GENERALISED OEDEMA [None]
